FAERS Safety Report 23222743 (Version 2)
Quarter: 2023Q4

REPORT INFORMATION
  Report Type: Report from Study
  Country: BR (occurrence: BR)
  Receive Date: 20231123
  Receipt Date: 20231227
  Transmission Date: 20240110
  Serious: Yes (Hospitalization, Other)
  Sender: FDA-Public Use
  Company Number: BR-JNJFOC-20231149062

PATIENT
  Age: 45 Year
  Sex: Male
  Weight: 79 kg

DRUGS (5)
  1. REMICADE [Suspect]
     Active Substance: INFLIXIMAB
     Indication: Crohn^s disease
     Route: 041
     Dates: start: 20160516, end: 202211
  2. REMICADE [Suspect]
     Active Substance: INFLIXIMAB
     Dosage: INFLIXIMAB 4 VIALS 60/60 DAYS
     Route: 041
  3. REMICADE [Suspect]
     Active Substance: INFLIXIMAB
     Dosage: PATIENT WILL RECEIVE 8 VIALS
     Route: 041
  4. MESALAMINE [Suspect]
     Active Substance: MESALAMINE
     Indication: Product used for unknown indication
     Route: 065
  5. ATROPINE [Suspect]
     Active Substance: ATROPINE\ATROPINE SULFATE
     Indication: Product used for unknown indication
     Route: 065

REACTIONS (6)
  - Tuberculosis [Recovered/Resolved]
  - Colitis [Unknown]
  - Crohn^s disease [Unknown]
  - Decreased immune responsiveness [Unknown]
  - Product prescribing error [Unknown]
  - Off label use [Unknown]

NARRATIVE: CASE EVENT DATE: 20221101
